FAERS Safety Report 20012166 (Version 1)
Quarter: 2021Q4

REPORT INFORMATION
  Report Type: Report from Study
  Country: None (occurrence: US)
  Receive Date: 20211028
  Receipt Date: 20211028
  Transmission Date: 20220303
  Serious: Yes (Other)
  Sender: FDA-Public Use
  Company Number: US-ABBVIE-21K-163-4138059-00

PATIENT
  Age: 72 Year
  Sex: Male

DRUGS (2)
  1. SYNTHROID [Suspect]
     Active Substance: LEVOTHYROXINE SODIUM
     Indication: Product used for unknown indication
     Route: 048
  2. PREDNISONE [Concomitant]
     Active Substance: PREDNISONE
     Indication: Product used for unknown indication

REACTIONS (4)
  - Chronic obstructive pulmonary disease [Unknown]
  - Renal cancer [Unknown]
  - Gastrointestinal carcinoma [Unknown]
  - Addison^s disease [Unknown]

NARRATIVE: CASE EVENT DATE: 20210101
